FAERS Safety Report 6424350-2 (Version None)
Quarter: 2009Q4

REPORT INFORMATION
  Report Type: 
  Country: None (occurrence: None)
  Receive Date: 20091103
  Receipt Date: 20091022
  Transmission Date: 20100525
  Serious: Yes (Hospitalization)
  Sender: FDA-Public Use
  Company Number: FR-WYE-G04687509

PATIENT
  Sex: Female

DRUGS (4)
  1. EFFEXOR [Suspect]
     Indication: DEPRESSION
     Dosage: 75 MG 3 TIMES PER DAY FROM AN UNKNOWN DATE TO AN UNKNOWN DATE IN 2009; THEN THE DOSE WAS DECREASED
     Route: 048
  2. LIORESAL [Suspect]
     Indication: MUSCLE CONTRACTURE
     Route: 048
     Dates: end: 20090225
  3. ETHANOL [Suspect]
     Dosage: } 2 L OF WINE PER DAY WITH ADDITIONAL APERITIVES
     Route: 048
  4. ALDACTONE [Suspect]
     Indication: ASCITES
     Dosage: 4 TABLETS TOTAL DAILY, THEN DOSE WAS INCREASED TO 150MG 3X PER DAY FROM UNKNOWN DATE TO 25-FEB-2009
     Route: 048

REACTIONS (3)
  - CIRRHOSIS ALCOHOLIC [None]
  - CONDITION AGGRAVATED [None]
  - HEPATIC ENCEPHALOPATHY [None]
